FAERS Safety Report 14618839 (Version 1)
Quarter: 2018Q1

REPORT INFORMATION
  Report Type: Spontaneous
  Country: IT (occurrence: IT)
  Receive Date: 20180309
  Receipt Date: 20180309
  Transmission Date: 20180509
  Serious: Yes (Hospitalization)
  Sender: FDA-Public Use
  Company Number: IT-009507513-1803ITA002381

PATIENT
  Age: 74 Year
  Sex: Male

DRUGS (3)
  1. OLYSIO [Suspect]
     Active Substance: SIMEPREVIR
     Dates: start: 20150501, end: 20150723
  2. RIBAVIRIN. [Suspect]
     Active Substance: RIBAVIRIN
     Dates: start: 20150401, end: 20150723
  3. SOVALDI [Suspect]
     Active Substance: SOFOSBUVIR
     Dates: start: 20150501, end: 20150723

REACTIONS (1)
  - Hepatocellular carcinoma [Unknown]

NARRATIVE: CASE EVENT DATE: 20160129
